FAERS Safety Report 8951883 (Version 1)
Quarter: 2012Q4

REPORT INFORMATION
  Report Type: 
  Country: AT (occurrence: AT)
  Receive Date: 20121204
  Receipt Date: 20121204
  Transmission Date: 20130627
  Serious: Yes (Hospitalization)
  Sender: FDA-Public Use
  Company Number: AT-ROCHE-1162646

PATIENT
  Age: 69 Year
  Sex: Female
  Weight: 75 kg

DRUGS (9)
  1. MABTHERA [Suspect]
     Indication: RHEUMATOID ARTHRITIS
     Route: 042
     Dates: start: 200906
  2. PREDNISOLONE [Concomitant]
     Indication: RHEUMATOID ARTHRITIS
  3. FOLSAN [Concomitant]
     Indication: RHEUMATOID ARTHRITIS
  4. OLEOVIT D3 [Concomitant]
     Indication: RHEUMATOID ARTHRITIS
  5. ACEMETACIN [Concomitant]
     Indication: RHEUMATOID ARTHRITIS
  6. SOTACOR [Concomitant]
     Indication: ATRIAL FIBRILLATION
  7. METHOTREXATE [Concomitant]
     Indication: RHEUMATOID ARTHRITIS
  8. MARCOUMAR [Concomitant]
     Indication: ATRIAL FIBRILLATION
  9. LEVOTHYROXINE SODIUM [Concomitant]
     Indication: RHEUMATOID ARTHRITIS

REACTIONS (3)
  - Chronic obstructive pulmonary disease [Recovered/Resolved]
  - Atrial tachycardia [Recovered/Resolved]
  - Atrial fibrillation [Recovered/Resolved]
